FAERS Safety Report 24808288 (Version 2)
Quarter: 2025Q1

REPORT INFORMATION
  Report Type: Spontaneous
  Country: US (occurrence: US)
  Receive Date: 20250106
  Receipt Date: 20250212
  Transmission Date: 20250408
  Serious: Yes (Other)
  Sender: BRISTOL-MYERS SQUIBB COMPANY
  Company Number: US-BRISTOL-MYERS SQUIBB COMPANY-2025-001190

PATIENT
  Age: 71 Year
  Sex: Male

DRUGS (1)
  1. POMALYST [Suspect]
     Active Substance: POMALIDOMIDE
     Indication: Plasma cell myeloma recurrent
     Dosage: DAILY FOR 21 DAYS ON THEN 7 DAYS OFF/1 CAP DAILY FOR 21 DS ON 7 DS OFF
     Route: 048

REACTIONS (3)
  - Neuropathy peripheral [Unknown]
  - Product prescribing issue [Unknown]
  - Therapy interrupted [Unknown]
